FAERS Safety Report 9165608 (Version 1)
Quarter: 2013Q1

REPORT INFORMATION
  Report Type: Spontaneous
  Country: US (occurrence: US)
  Receive Date: 20130315
  Receipt Date: 20130315
  Transmission Date: 20140127
  Serious: No
  Sender: FDA-Public Use
  Company Number: US-TEVA-392288USA

PATIENT
  Age: 31 Year
  Sex: Female

DRUGS (2)
  1. PLAN B ONE-STEP [Suspect]
     Indication: POST COITAL CONTRACEPTION
     Dosage: 1.5 MILLIGRAM DAILY;
     Route: 048
     Dates: start: 20130303, end: 20130303
  2. VESICARE [Concomitant]
     Indication: HYPERTONIC BLADDER
     Dates: start: 2012

REACTIONS (6)
  - Vaginal discharge [Not Recovered/Not Resolved]
  - Back pain [Not Recovered/Not Resolved]
  - Pain [Not Recovered/Not Resolved]
  - Uterine spasm [Not Recovered/Not Resolved]
  - Breast pain [Not Recovered/Not Resolved]
  - Headache [Not Recovered/Not Resolved]
